FAERS Safety Report 6134308-9 (Version None)
Quarter: 2009Q1

REPORT INFORMATION
  Report Type: 
  Country: None (occurrence: None)
  Receive Date: 20090325
  Receipt Date: 20090311
  Transmission Date: 20090719
  Serious: Yes (Hospitalization)
  Sender: FDA-Public Use
  Company Number: 2009PL000051

PATIENT
  Age: 42 Year
  Sex: Female

DRUGS (1)
  1. AZATHIOPRINE [Suspect]
     Dosage: 150 MG;QD

REACTIONS (15)
  - ABDOMINAL PAIN [None]
  - ALOPECIA [None]
  - ARTHRALGIA [None]
  - BILIARY TRACT DISORDER [None]
  - BODY TEMPERATURE INCREASED [None]
  - CHOLESTASIS [None]
  - CONTUSION [None]
  - DYSURIA [None]
  - ERYTHEMA [None]
  - JAUNDICE [None]
  - PANCYTOPENIA [None]
  - RAYNAUD'S PHENOMENON [None]
  - THROMBOSIS [None]
  - VASCULITIS [None]
  - VOMITING [None]
